FAERS Safety Report 5867345-X (Version None)
Quarter: 2008Q3

REPORT INFORMATION
  Report Type: 
  Country: None (occurrence: None)
  Receive Date: 20080902
  Receipt Date: 20080821
  Transmission Date: 20090109
  Serious: Yes (Other)
  Sender: FDA-Public Use
  Company Number: PHHY2008JP17501

PATIENT
  Sex: Female
  Weight: 53 kg

DRUGS (3)
  1. LAMISIL [Suspect]
     Dosage: 125 MG/DAY
     Route: 048
     Dates: start: 20080513, end: 20080624
  2. AMLODIPINE BESYLATE [Concomitant]
     Indication: HYPERTENSION
     Dosage: 5 MG UNK
     Route: 048
     Dates: start: 20050906
  3. OLMETEC [Concomitant]
     Indication: HYPERTENSION
     Dosage: 20 MG UNK
     Route: 048
     Dates: start: 20051110

REACTIONS (7)
  - ALANINE AMINOTRANSFERASE INCREASED [None]
  - ASPARTATE AMINOTRANSFERASE INCREASED [None]
  - BLOOD CHOLESTEROL INCREASED [None]
  - BLOOD TRIGLYCERIDES INCREASED [None]
  - GAMMA-GLUTAMYLTRANSFERASE INCREASED [None]
  - HEPATIC FUNCTION ABNORMAL [None]
  - MALAISE [None]
